FAERS Safety Report 23939056 (Version 3)
Quarter: 2024Q3

REPORT INFORMATION
  Report Type: Spontaneous
  Country: JP (occurrence: JP)
  Receive Date: 20240604
  Receipt Date: 20240913
  Transmission Date: 20241017
  Serious: Yes (Hospitalization, Other)
  Sender: MERCK
  Company Number: JP-MSD-2405JPN003381JAA

PATIENT
  Age: 70 Year
  Sex: Male
  Weight: 41 kg

DRUGS (3)
  1. KEYTRUDA [Suspect]
     Active Substance: PEMBROLIZUMAB
     Indication: Clear cell renal cell carcinoma
     Dosage: UNK
     Route: 041
  2. AXITINIB [Suspect]
     Active Substance: AXITINIB
     Indication: Clear cell renal cell carcinoma
     Dosage: UNK
     Route: 065
     Dates: end: 2023
  3. BETAMETHASONE [Concomitant]
     Active Substance: BETAMETHASONE
     Indication: Brain oedema
     Dosage: 0.5 MILLIGRAM
     Route: 065
     Dates: end: 2023

REACTIONS (2)
  - Drug-induced liver injury [Recovered/Resolved]
  - Immune-mediated hepatic disorder [Recovered/Resolved]

NARRATIVE: CASE EVENT DATE: 20230101
